FAERS Safety Report 17426445 (Version 1)
Quarter: 2020Q1

REPORT INFORMATION
  Report Type: Spontaneous
  Country: US (occurrence: US)
  Receive Date: 20200217
  Receipt Date: 20200217
  Transmission Date: 20200409
  Serious: Yes (Death, Hospitalization)
  Sender: FDA-Public Use
  Company Number: US-PFIZER INC-2020041384

PATIENT
  Age: 59 Year
  Sex: Female

DRUGS (1)
  1. MYCOBUTIN [Suspect]
     Active Substance: RIFABUTIN
     Dosage: 150 MG, UNK (QUANTITY FOR 90 DAYS: 90/3 REFILLS)

REACTIONS (1)
  - Death [Fatal]
